FAERS Safety Report 25049070 (Version 1)
Quarter: 2025Q1

REPORT INFORMATION
  Report Type: Spontaneous
  Country: RU (occurrence: RU)
  Receive Date: 20250307
  Receipt Date: 20250307
  Transmission Date: 20250408
  Serious: Yes (Other)
  Sender: JOHNSON AND JOHNSON
  Company Number: RU-JNJFOC-20250302389

PATIENT
  Age: 61 Year
  Sex: Female

DRUGS (10)
  1. DARZALEX [Suspect]
     Active Substance: DARATUMUMAB
     Indication: Plasma cell myeloma
     Route: 041
  2. VELCADE [Suspect]
     Active Substance: BORTEZOMIB
     Indication: Plasma cell myeloma
     Route: 058
  3. REVLIMID [Suspect]
     Active Substance: LENALIDOMIDE
     Indication: Plasma cell myeloma
     Route: 065
  4. DEXAMETHASONE [Suspect]
     Active Substance: DEXAMETHASONE
     Indication: Plasma cell myeloma
     Route: 065
  5. ACYCLOVIR [Concomitant]
     Active Substance: ACYCLOVIR
  6. OMEPRAZOLE [Concomitant]
     Active Substance: OMEPRAZOLE
  7. CALCIUM D3 [CALCIUM CARBONATE;COLECALCIFEROL] [Concomitant]
  8. FILGRASTIM [Concomitant]
     Active Substance: FILGRASTIM
     Indication: Neutropenia
  9. DENOSUMAB [Concomitant]
     Active Substance: DENOSUMAB
  10. IMMUNOGLOBULINS [Concomitant]
     Indication: Hypogammaglobulinaemia

REACTIONS (2)
  - Polyneuropathy [Unknown]
  - Upper respiratory tract infection [Unknown]
